FAERS Safety Report 11439783 (Version 1)
Quarter: 2015Q3

REPORT INFORMATION
  Report Type: Spontaneous
  Country: US (occurrence: US)
  Receive Date: 20150901
  Receipt Date: 20150901
  Transmission Date: 20151125
  Serious: No
  Sender: FDA-Public Use
  Company Number: US-ROCHE-1091294

PATIENT
  Sex: Female

DRUGS (4)
  1. PROCRIT [Concomitant]
     Active Substance: ERYTHROPOIETIN
  2. RIBAVIRIN. [Suspect]
     Active Substance: RIBAVIRIN
     Indication: HEPATITIS C
     Dosage: DOSE DIVIDED
     Route: 065
     Dates: start: 20120107, end: 20120616
  3. PEGASYS [Suspect]
     Active Substance: PEGINTERFERON ALFA-2A
     Indication: HEPATITIS C
     Route: 065
     Dates: start: 20120107
  4. NEUPOGEN [Concomitant]
     Active Substance: FILGRASTIM

REACTIONS (7)
  - Fatigue [Unknown]
  - Memory impairment [Unknown]
  - White blood cell count decreased [Unknown]
  - Feeling abnormal [Unknown]
  - Thyroid disorder [Unknown]
  - Mental disorder [Unknown]
  - Red blood cell count decreased [Unknown]
